FAERS Safety Report 4457623-3 (Version None)
Quarter: 2004Q3

REPORT INFORMATION
  Report Type: 
  Country: None (occurrence: None)
  Receive Date: 20040922
  Receipt Date: 20040908
  Transmission Date: 20050211
  Serious: Yes (Hospitalization)
  Sender: FDA-Public Use
  Company Number: 2004-SW-000277SW

PATIENT
  Age: 81 Year
  Sex: Male

DRUGS (4)
  1. ASSANTIN RETARD 25 MG + 200 MG (KAR) [Suspect]
     Indication: CEREBRAL INFARCTION
     Dosage: PO
     Route: 048
     Dates: end: 20040520
  2. FURADANTIN (NITROFURANTOIN) (TA) [Suspect]
     Indication: URINARY TRACT INFECTION
     Dosage: 50 MG PO
     Route: 048
     Dates: start: 20040513, end: 20040515
  3. SELOKEN ZOC (METOPROLOL SUCCINATE) (TAD) [Concomitant]
  4. NORVASC (AMLODIPINE) (TA) [Concomitant]

REACTIONS (9)
  - ANAEMIA [None]
  - DUODENAL ULCER [None]
  - DYSPNOEA [None]
  - FAECES DISCOLOURED [None]
  - MUCOSAL EROSION [None]
  - NAUSEA [None]
  - TACHYCARDIA [None]
  - URINARY TRACT INFECTION [None]
  - VOMITING [None]
